FAERS Safety Report 5208060-5 (Version None)
Quarter: 2007Q1

REPORT INFORMATION
  Report Type: 
  Country: None (occurrence: None)
  Receive Date: 20070115
  Receipt Date: 20070110
  Transmission Date: 20070707
  Serious: Yes (Hospitalization)
  Sender: FDA-Public Use
  Company Number: JP-BAYER-200611172BYL

PATIENT
  Age: 79 Year
  Sex: Male

DRUGS (4)
  1. ADALAT [Suspect]
     Route: 048
  2. ASPIRIN [Suspect]
     Route: 048
  3. CIBENOL [Concomitant]
     Route: 065
  4. PARIET [Concomitant]
     Route: 048

REACTIONS (1)
  - RENAL FAILURE ACUTE [None]
